FAERS Safety Report 17435846 (Version 1)
Quarter: 2020Q1

REPORT INFORMATION
  Report Type: Spontaneous
  Country: NL (occurrence: NL)
  Receive Date: 20200219
  Receipt Date: 20200219
  Transmission Date: 20200409
  Serious: Yes (Hospitalization)
  Sender: FDA-Public Use
  Company Number: NL-PFIZER INC-2020068473

PATIENT
  Age: 52 Year
  Sex: Female

DRUGS (3)
  1. LONQUEX [Suspect]
     Active Substance: LIPEGFILGRASTIM
     Dosage: 6 MG, CYCLIC
     Route: 058
     Dates: start: 20190815
  2. PACLITAXEL. [Suspect]
     Active Substance: PACLITAXEL
     Dosage: UNK
  3. CYCLOPHOSPHAMIDE. [Suspect]
     Active Substance: CYCLOPHOSPHAMIDE
     Dosage: UNK

REACTIONS (4)
  - Body temperature increased [Recovering/Resolving]
  - Fatigue [Recovering/Resolving]
  - Bone pain [Recovered/Resolved]
  - Malaise [Recovering/Resolving]

NARRATIVE: CASE EVENT DATE: 20190814
